APPROVED DRUG PRODUCT: SULFAMETHOXAZOLE
Active Ingredient: SULFAMETHOXAZOLE
Strength: 500MG
Dosage Form/Route: TABLET;ORAL
Application: A087189 | Product #001
Applicant: BARR LABORATORIES INC
Approved: Jul 25, 1983 | RLD: No | RS: No | Type: DISCN